FAERS Safety Report 21981333 (Version 2)
Quarter: 2024Q1

REPORT INFORMATION
  Report Type: Spontaneous
  Country: US (occurrence: US)
  Receive Date: 20230211
  Receipt Date: 20240129
  Transmission Date: 20240410
  Serious: No
  Sender: FDA-Public Use
  Company Number: US-TAKEDA-2023TUS012842

PATIENT
  Age: 49 Year
  Sex: Female

DRUGS (3)
  1. MOTEGRITY [Suspect]
     Active Substance: PRUCALOPRIDE SUCCINATE
     Indication: Constipation
     Dosage: 2 MILLIGRAM
     Route: 065
  2. AMITIZA [Suspect]
     Active Substance: LUBIPROSTONE
     Indication: Constipation
     Dosage: UNK
     Route: 065
  3. LINZESS [Concomitant]
     Active Substance: LINACLOTIDE
     Indication: Constipation
     Dosage: UNK
     Route: 065

REACTIONS (13)
  - Panic attack [Unknown]
  - Crying [Unknown]
  - Inability to afford medication [Unknown]
  - Insurance issue [Unknown]
  - Road traffic accident [Unknown]
  - Memory impairment [Unknown]
  - Disturbance in attention [Unknown]
  - Depression [Unknown]
  - Blood pressure increased [Recovering/Resolving]
  - Feelings of worthlessness [Unknown]
  - Illness [Unknown]
  - Abdominal distension [Unknown]
  - Fatigue [Unknown]
